FAERS Safety Report 15766937 (Version 1)
Quarter: 2018Q4

REPORT INFORMATION
  Report Type: Report from Study
  Country: BR (occurrence: BR)
  Receive Date: 20181227
  Receipt Date: 20181227
  Transmission Date: 20190205
  Serious: Yes (Death, Hospitalization, Other)
  Sender: FDA-Public Use
  Company Number: BR-BIOGEN-2018BI00675310

PATIENT
  Age: 2 Year
  Sex: Male

DRUGS (4)
  1. SPINRAZA [Suspect]
     Active Substance: NUSINERSEN
     Dosage: 4TH DOSE
     Route: 065
     Dates: start: 201809
  2. TRIPLE VIRAL VACCINE [Concomitant]
     Indication: PRODUCT USED FOR UNKNOWN INDICATION
     Route: 065
  3. PNEUMOCOCCAL VACCINE 13 [Concomitant]
     Indication: PRODUCT USED FOR UNKNOWN INDICATION
     Route: 065
  4. SPINRAZA [Suspect]
     Active Substance: NUSINERSEN
     Indication: SPINAL MUSCULAR ATROPHY
     Route: 065

REACTIONS (8)
  - H1N1 influenza [Recovered/Resolved]
  - Lung infiltration [Unknown]
  - Staphylococcal bacteraemia [Unknown]
  - Pneumonia [Recovered/Resolved]
  - Cardiac arrest [Fatal]
  - Cardiac autonomic neuropathy [Fatal]
  - Pyrexia [Unknown]
  - Bulbar palsy [Fatal]

NARRATIVE: CASE EVENT DATE: 201809
